FAERS Safety Report 21902534 (Version 1)
Quarter: 2023Q1

REPORT INFORMATION
  Report Type: Spontaneous
  Country: DE (occurrence: DE)
  Receive Date: 20230124
  Receipt Date: 20230124
  Transmission Date: 20230418
  Serious: Yes (Hospitalization)
  Sender: FDA-Public Use
  Company Number: None

PATIENT
  Age: 72 Year
  Sex: Female
  Weight: 75 kg

DRUGS (6)
  1. IBUPROFEN [Suspect]
     Active Substance: IBUPROFEN
     Indication: Product used for unknown indication
     Dosage: UNK, TABLET
     Route: 048
  2. Captopril, Hydrochlorothiazide [Concomitant]
     Indication: Product used for unknown indication
     Dosage: UNK, TABLET
     Route: 048
  3. Insuman Basal 100 IU/ml Suspension for injection in a cartridge [Concomitant]
     Indication: Product used for unknown indication
     Dosage: UNK
     Route: 058
  4. METFORMIN [Concomitant]
     Active Substance: METFORMIN HYDROCHLORIDE
     Indication: Product used for unknown indication
     Dosage: UNK,TABLET
     Route: 048
  5. METAMIZOL [Concomitant]
     Active Substance: METAMIZOLE SODIUM
     Indication: Product used for unknown indication
     Dosage: UNK, TABLET
     Route: 048
  6. PREGABALIN [Concomitant]
     Active Substance: PREGABALIN
     Indication: Product used for unknown indication
     Dosage: UNK, CAPSULE
     Route: 048

REACTIONS (3)
  - Musculoskeletal pain [Unknown]
  - Peripheral coldness [Unknown]
  - Product prescribing error [Unknown]
